FAERS Safety Report 20651450 (Version 1)
Quarter: 2022Q1

REPORT INFORMATION
  Report Type: Spontaneous
  Country: CN (occurrence: CN)
  Receive Date: 20220330
  Receipt Date: 20220330
  Transmission Date: 20220424
  Serious: Yes (Other)
  Sender: FDA-Public Use
  Company Number: CN-SUN PHARMACEUTICAL INDUSTRIES LTD-2022R1-330744

PATIENT
  Age: 42 Year
  Sex: Male

DRUGS (3)
  1. DOCETAXEL [Suspect]
     Active Substance: DOCETAXEL
     Indication: Chemotherapy
     Dosage: 130 MILLIGRAM, EVERY 3 WEEKS
     Route: 065
     Dates: start: 201712
  2. GEMCITABINE [Concomitant]
     Active Substance: GEMCITABINE
     Indication: Chemotherapy
     Dosage: 1.3 GRAM
     Route: 065
     Dates: start: 201712
  3. PAZOPANIB [Concomitant]
     Active Substance: PAZOPANIB
     Indication: Chemotherapy
     Dosage: 400 MILLIGRAM, DAILY
     Route: 065
     Dates: start: 201712

REACTIONS (1)
  - Disease progression [Unknown]
